FAERS Safety Report 13260182 (Version 1)
Quarter: 2017Q1

REPORT INFORMATION
  Report Type: Spontaneous
  Country: US (occurrence: US)
  Receive Date: 20170222
  Receipt Date: 20170222
  Transmission Date: 20170428
  Serious: Yes (Life-Threatening, Disabling, Other)
  Sender: FDA-Public Use
  Company Number: None

PATIENT

DRUGS (1)
  1. SYNTHROID [Suspect]
     Active Substance: LEVOTHYROXINE SODIUM
     Indication: HYPOTHYROIDISM
     Dosage: 400MCG 2 PER DAY 2 PER WATER
     Dates: start: 201701, end: 201701

REACTIONS (17)
  - Bradyphrenia [None]
  - Cardiac disorder [None]
  - Asthenia [None]
  - Fatigue [None]
  - Drug ineffective [None]
  - Heart rate decreased [None]
  - Rash [None]
  - Memory impairment [None]
  - Myalgia [None]
  - Constipation [None]
  - Hypertension [None]
  - Nail disorder [None]
  - Neck pain [None]
  - Alopecia [None]
  - Dry skin [None]
  - Dyspnoea [None]
  - Weight increased [None]
